FAERS Safety Report 6582523-2 (Version None)
Quarter: 2010Q1

REPORT INFORMATION
  Report Type: 
  Country: None (occurrence: None)
  Receive Date: 20100216
  Receipt Date: 20100209
  Transmission Date: 20100710
  Serious: Yes (Hospitalization)
  Sender: FDA-Public Use
  Company Number: PHHO2005DE02435

PATIENT
  Sex: Female
  Weight: 81 kg

DRUGS (7)
  1. CGS 20267 T30748+ [Suspect]
     Indication: BREAST CANCER
     Dosage: 2.5 MG, QD
     Route: 048
     Dates: start: 20040817
  2. DIGITOXIN [Concomitant]
     Dates: start: 20010601
  3. ZOCOR [Concomitant]
     Dates: start: 20040301
  4. ALDACTONE [Concomitant]
     Dates: start: 20010101
  5. FALITHROM [Concomitant]
     Dates: start: 20010101
  6. CORVATON [Concomitant]
     Dates: start: 20010101
  7. METOHEXAL [Concomitant]
     Dates: start: 20010101

REACTIONS (3)
  - ARRHYTHMIA [None]
  - DIZZINESS [None]
  - DYSPNOEA [None]
